FAERS Safety Report 8006266-3 (Version None)
Quarter: 2011Q4

REPORT INFORMATION
  Report Type: 
  Country: None (occurrence: None)
  Receive Date: 20111226
  Receipt Date: 20111216
  Transmission Date: 20120403
  Serious: Yes (Other)
  Sender: FDA-Public Use
  Company Number: PHHY2011NL109944

PATIENT
  Sex: Female

DRUGS (4)
  1. ZOMETA [Suspect]
     Dosage: 4 MG/ 5 ML PER 28 DAYS
     Dates: start: 20111216
  2. FEMARA [Suspect]
  3. ZOMETA [Suspect]
     Dosage: 4 MG/ 5 ML PER 28 DAYS
     Dates: start: 20111101
  4. ZOMETA [Suspect]
     Indication: BREAST CANCER METASTATIC
     Dosage: 4 MG/ 5 ML PER 28 DAYS
     Dates: start: 20100426

REACTIONS (1)
  - CARBOHYDRATE ANTIGEN 125 INCREASED [None]
